FAERS Safety Report 12663462 (Version 1)
Quarter: 2016Q3

REPORT INFORMATION
  Report Type: Spontaneous
  Country: US (occurrence: None)
  Receive Date: 20160817
  Receipt Date: 20160817
  Transmission Date: 20161109
  Serious: No
  Sender: FDA-Public Use
  Company Number: None

PATIENT
  Age: 62 Year
  Sex: Male
  Weight: 123.2 kg

DRUGS (4)
  1. MEDTRONIC ACT PLUS [Concomitant]
  2. MEDTRONIC ACT [Concomitant]
  3. HEPARIN SODIUM INJ 10,000 USP / 10ML [Suspect]
     Active Substance: HEPARIN SODIUM
     Dosage: 2500 THEN 3000 UNITS ONCE
     Dates: start: 20160801
  4. HEPARIN SODIUM INJ 10,000 USP / 10ML [Suspect]
     Active Substance: HEPARIN SODIUM
     Indication: CATHETERISATION CARDIAC
     Dosage: 4000 THEN 6000 UNITS ONCE
     Dates: start: 20160801

REACTIONS (1)
  - Therapeutic response decreased [None]

NARRATIVE: CASE EVENT DATE: 20160801
